FAERS Safety Report 9143804 (Version 1)
Quarter: 2013Q1

REPORT INFORMATION
  Report Type: Report from Study
  Country: US (occurrence: US)
  Receive Date: 20130306
  Receipt Date: 20130306
  Transmission Date: 20140127
  Serious: Yes (Death)
  Sender: FDA-Public Use
  Company Number: US-B.I. PHARMACEUTICALS,INC./RIDGEFIELD-2012-EU-04849GD

PATIENT
  Age: 42 Year
  Sex: 0

DRUGS (3)
  1. MELOXICAM [Suspect]
     Route: 048
  2. AMLODIPINE [Suspect]
     Route: 048
  3. FEXOFENADINE [Suspect]
     Route: 048

REACTIONS (1)
  - Completed suicide [Fatal]
